FAERS Safety Report 5008091-4 (Version None)
Quarter: 2006Q2

REPORT INFORMATION
  Report Type: 
  Country: None (occurrence: None)
  Receive Date: 20060404
  Receipt Date: 20050730
  Transmission Date: 20061013
  Serious: Yes (Other)
  Sender: FDA-Public Use
  Company Number: 2005095397

PATIENT
  Age: 17 Year
  Sex: Female
  Weight: 59.8748 kg

DRUGS (5)
  1. GEODON [Suspect]
     Indication: HALLUCINATION
     Dosage: (2 IN 1 D), ORAL
     Route: 048
     Dates: start: 20050429, end: 20050531
  2. LEXAPRO [Suspect]
     Indication: ILL-DEFINED DISORDER
     Dosage: ORAL
     Route: 048
  3. KLONOPIN [Concomitant]
  4. AMITRIPTYLINE HCL [Concomitant]
  5. RITALIN [Concomitant]

REACTIONS (7)
  - DRUG INTOLERANCE [None]
  - FEELING HOT [None]
  - FLUSHING [None]
  - HEART RATE INCREASED [None]
  - HYPERTENSION [None]
  - MALAISE [None]
  - PYREXIA [None]
